FAERS Safety Report 9223109 (Version 3)
Quarter: 2013Q2

REPORT INFORMATION
  Report Type: Report from Study
  Country: MX (occurrence: MX)
  Receive Date: 20130410
  Receipt Date: 20130614
  Transmission Date: 20140414
  Serious: Yes (Other)
  Sender: FDA-Public Use
  Company Number: PHHY2013MX033751

PATIENT
  Age: 62 Year
  Sex: Male

DRUGS (4)
  1. ONBREZ [Suspect]
     Indication: BULLOUS LUNG DISEASE
     Dosage: 300 UG, QD
     Dates: start: 201303
  2. ONBREZ [Suspect]
     Indication: OFF LABEL USE
  3. ACETYLSALICYLIC ACID [Concomitant]
     Indication: CARDIAC DISORDER
     Dosage: UNK
  4. SALBUTAMOL [Concomitant]
     Indication: DYSPNOEA

REACTIONS (4)
  - Skin mass [Not Recovered/Not Resolved]
  - Bleeding varicose vein [Not Recovered/Not Resolved]
  - Condition aggravated [Not Recovered/Not Resolved]
  - Cough [Not Recovered/Not Resolved]
